FAERS Safety Report 5061624-4 (Version None)
Quarter: 2006Q3

REPORT INFORMATION
  Report Type: 
  Country: None (occurrence: None)
  Receive Date: 20060721
  Receipt Date: 20060705
  Transmission Date: 20061208
  Serious: Yes (Death, Other)
  Sender: FDA-Public Use
  Company Number: US200606002531

PATIENT
  Age: 96 Year
  Sex: Female

DRUGS (2)
  1. FORTEO [Suspect]
  2. FORTEO [Concomitant]

REACTIONS (2)
  - CARDIAC ARREST [None]
  - CORONARY ARTERY DISEASE [None]
